FAERS Safety Report 19194207 (Version 1)
Quarter: 2021Q2

REPORT INFORMATION
  Report Type: Spontaneous
  Country: US (occurrence: US)
  Receive Date: 20210429
  Receipt Date: 20210429
  Transmission Date: 20210717
  Serious: Yes (Other)
  Sender: FDA-Public Use
  Company Number: None

PATIENT
  Age: 20 Year
  Sex: Female

DRUGS (14)
  1. LITHIUM. [Concomitant]
     Active Substance: LITHIUM
     Dates: start: 20170712
  2. DIPHENHYDRAMINE. [Concomitant]
     Active Substance: DIPHENHYDRAMINE
     Dates: start: 20201219
  3. BENZTROPINE. [Concomitant]
     Active Substance: BENZTROPINE
     Dates: start: 20170712
  4. ALBUTEROL INHALER [Concomitant]
     Active Substance: ALBUTEROL
     Dates: start: 20150916
  5. CETIRIZINE [Concomitant]
     Active Substance: CETIRIZINE HYDROCHLORIDE
     Dates: start: 20151006
  6. OMEPRAZOLE. [Concomitant]
     Active Substance: OMEPRAZOLE
     Dates: start: 20170712
  7. GABAPENTIN. [Concomitant]
     Active Substance: GABAPENTIN
     Dates: start: 20210324
  8. CLONZAPAM [Concomitant]
     Active Substance: CLONAZEPAM
     Dates: start: 20201219
  9. MIRTAZEPINE [Concomitant]
     Active Substance: MIRTAZAPINE
     Dates: start: 20210406
  10. MONTELUKAST [Concomitant]
     Active Substance: MONTELUKAST SODIUM
     Dates: start: 20210406
  11. TAYTULLA [Concomitant]
     Active Substance: ETHINYL ESTRADIOL\NORETHINDRONE ACETATE
     Dates: start: 20190206
  12. OLANZAPINE. [Concomitant]
     Active Substance: OLANZAPINE
     Dates: start: 20161018
  13. ZONISAMIDE. [Concomitant]
     Active Substance: ZONISAMIDE
     Dates: start: 20210210
  14. TETRABENAZINE. [Suspect]
     Active Substance: TETRABENAZINE
     Indication: TARDIVE DYSKINESIA
     Route: 048
     Dates: start: 20210414, end: 20210428

REACTIONS (4)
  - Intentional self-injury [None]
  - Aggression [None]
  - Screaming [None]
  - Drug ineffective [None]

NARRATIVE: CASE EVENT DATE: 20210428
